FAERS Safety Report 23131448 (Version 4)
Quarter: 2023Q4

REPORT INFORMATION
  Report Type: Spontaneous
  Country: FR (occurrence: FR)
  Receive Date: 20231031
  Receipt Date: 20231208
  Transmission Date: 20240110
  Serious: Yes (Hospitalization)
  Sender: FDA-Public Use
  Company Number: FR-AMERICAN REGENT INC-2023002518

PATIENT
  Age: 73 Year
  Sex: Male
  Weight: 57.3 kg

DRUGS (5)
  1. FERINJECT [Suspect]
     Active Substance: FERRIC CARBOXYMALTOSE
     Indication: Iron deficiency anaemia
     Dosage: 1 GM, 1 IN 1 TOTAL (SCHEDULED DOSE: 1 INFUSION OF 1 G ON 19.SEP.2023 AND 1 INFUSION OF 500 MG ON 26.
     Dates: start: 20230919, end: 20230919
  2. PAROXETINE [Concomitant]
     Active Substance: PAROXETINE
     Indication: Depression
     Dosage: UNK
     Route: 065
  3. GABAPENTIN [Concomitant]
     Active Substance: GABAPENTIN
     Indication: Fibromyalgia
     Dosage: UNK
     Route: 065
     Dates: start: 2022
  4. GABAPENTIN [Concomitant]
     Active Substance: GABAPENTIN
     Indication: Musculoskeletal pain
  5. GABAPENTIN [Concomitant]
     Active Substance: GABAPENTIN
     Indication: Irritable bowel syndrome

REACTIONS (3)
  - Pigmentation disorder [Not Recovered/Not Resolved]
  - Hypophosphataemia [Recovered/Resolved]
  - Infusion site extravasation [Recovered/Resolved]

NARRATIVE: CASE EVENT DATE: 20230919
